FAERS Safety Report 7214632-9 (Version None)
Quarter: 2011Q1

REPORT INFORMATION
  Report Type: 
  Country: None (occurrence: None)
  Receive Date: 20110107
  Receipt Date: 20101217
  Transmission Date: 20110831
  Serious: No
  Sender: FDA-Public Use
  Company Number: US-B.I. PHARMACEUTICALS,INC./RIDGEFIELD-2010-BP-15109BP

PATIENT
  Age: 68 Year
  Sex: Female

DRUGS (5)
  1. LASIX [Concomitant]
     Indication: FLUID RETENTION
     Dosage: 40 MG
     Route: 048
  2. RELAFEN [Concomitant]
     Indication: ARTHRITIS
     Dosage: 25 MG
     Route: 048
  3. TENORMIN [Concomitant]
     Indication: HYPERTENSION
     Dosage: 25 MG
     Route: 048
  4. PRADAXA [Suspect]
     Indication: ATRIAL FIBRILLATION
     Dosage: 300 MG
     Route: 048
     Dates: start: 20101130
  5. HYDRALAZINE [Concomitant]
     Indication: FLUID RETENTION
     Dosage: 25 MG
     Route: 048

REACTIONS (4)
  - EPISTAXIS [None]
  - RHINORRHOEA [None]
  - FATIGUE [None]
  - EYE HAEMORRHAGE [None]
